FAERS Safety Report 13739713 (Version 1)
Quarter: 2017Q3

REPORT INFORMATION
  Report Type: Spontaneous
  Country: BR (occurrence: BR)
  Receive Date: 20170710
  Receipt Date: 20170710
  Transmission Date: 20171127
  Serious: Yes (Other)
  Sender: FDA-Public Use
  Company Number: PHHY2014BR051708

PATIENT
  Age: 72 Year
  Sex: Male
  Weight: 86 kg

DRUGS (4)
  1. HYDERGINE [Suspect]
     Active Substance: ERGOLOID MESYLATES
     Dosage: 10 DRP (4.5 MG) TID
     Route: 048
     Dates: start: 20140422, end: 20140422
  2. DRUG THERAPY NOS [Concomitant]
     Active Substance: UNSPECIFIED INGREDIENT
     Dosage: UNK UKN, UNK
  3. HYDERGINE [Suspect]
     Active Substance: ERGOLOID MESYLATES
     Dosage: 10 DRP (1MG/ML) TID
     Route: 048
  4. HYDERGINE [Suspect]
     Active Substance: ERGOLOID MESYLATES
     Indication: HEADACHE
     Dosage: 10 DRP (1MG/ML) TID
     Route: 048

REACTIONS (4)
  - Drug dispensing error [Unknown]
  - Insomnia [Recovered/Resolved]
  - Urinary tract inflammation [Recovering/Resolving]
  - Pain [Recovering/Resolving]

NARRATIVE: CASE EVENT DATE: 20140422
